FAERS Safety Report 19777071 (Version 2)
Quarter: 2021Q3

REPORT INFORMATION
  Report Type: Spontaneous
  Country: FR (occurrence: FR)
  Receive Date: 20210902
  Receipt Date: 20210920
  Transmission Date: 20211014
  Serious: Yes (Hospitalization)
  Sender: FDA-Public Use
  Company Number: FR-TEVA-2021-FR-1947225

PATIENT
  Age: 70 Year
  Sex: Male

DRUGS (9)
  1. ALLOPURINOL. [Suspect]
     Active Substance: ALLOPURINOL
     Indication: HYPERURICAEMIA
     Dosage: UNKNOWN
     Route: 048
     Dates: start: 20210702, end: 20210720
  2. BISOPROLOL (FUMARATE ACIDE DE) [Concomitant]
     Active Substance: BISOPROLOL FUMARATE
     Dosage: THERAPY START DATE: ASKU, UNIT DOSE: 5 MG
     Route: 048
  3. GLIVEC [Suspect]
     Active Substance: IMATINIB MESYLATE
     Indication: CHRONIC MYELOID LEUKAEMIA
     Dosage: UNIT DOSE: 200 MG
     Route: 048
     Dates: start: 20210704, end: 20210723
  4. ATEZOLIZUMAB. [Concomitant]
     Active Substance: ATEZOLIZUMAB
     Dosage: UNKNOWN, THERAPY  END DATE: ASKU
     Route: 042
     Dates: start: 201805
  5. LEVOTHYROX [Concomitant]
     Active Substance: LEVOTHYROXINE
     Dosage: THERAPY START DATE : ASKU, UNIT DOSE: 112 MCG
     Route: 048
  6. INDAPAMIDE. [Concomitant]
     Active Substance: INDAPAMIDE
     Dosage: THERAPY START DATE: ASKU, UNIT DOSE: 1.5 MG
     Route: 048
  7. INNOHEP [Concomitant]
     Active Substance: TINZAPARIN SODIUM
     Dosage: UNKNOWN
     Route: 058
     Dates: start: 20191227
  8. GAVISCON, COMPRIME [Concomitant]
     Dosage: THERAPY START DATE: ASKU
     Route: 048
  9. KALEORID LP 1000 MG, COMPRIME A LIBERATION PROLONGEE [Concomitant]
     Active Substance: POTASSIUM CHLORIDE
     Dosage: THERAPY START DATE: ASKU, UNIT DOSE: 1 DF
     Route: 048

REACTIONS (2)
  - Erythema [Recovering/Resolving]
  - Pruritus [Recovering/Resolving]

NARRATIVE: CASE EVENT DATE: 20210720
